FAERS Safety Report 6056520-X (Version None)
Quarter: 2009Q1

REPORT INFORMATION
  Report Type: 
  Country: None (occurrence: None)
  Receive Date: 20090129
  Receipt Date: 20080620
  Transmission Date: 20090719
  Serious: Yes (Other)
  Sender: FDA-Public Use
  Company Number: A0734170A

PATIENT
  Age: 60 Year
  Sex: Male

DRUGS (3)
  1. COMBIVIR [Suspect]
     Indication: HIV INFECTION
     Dosage: 1TAB TWICE PER DAY
     Route: 048
     Dates: start: 20030601
  2. NEURONTIN [Concomitant]
  3. CRIXIVAN [Concomitant]

REACTIONS (2)
  - DIARRHOEA [None]
  - NEUROPATHY PERIPHERAL [None]
